FAERS Safety Report 5323169-3 (Version None)
Quarter: 2007Q2

REPORT INFORMATION
  Report Type: 
  Country: None (occurrence: None)
  Receive Date: 20070220
  Receipt Date: 20061117
  Transmission Date: 20071010
  Serious: No
  Sender: FDA-Public Use
  Company Number: WAES 0611USA05517

PATIENT
  Age: 60 Year
  Sex: Female

DRUGS (4)
  1. JANUVIA [Suspect]
     Indication: DIABETES MELLITUS
     Dosage: 100 MG/DAILY/PO
     Route: 048
     Dates: start: 20061108, end: 20061110
  2. GLUCOPHAGE [Concomitant]
  3. NOVOLOG [Concomitant]
  4. ASPIRIN [Concomitant]

REACTIONS (1)
  - MUSCULOSKELETAL PAIN [None]
